FAERS Safety Report 9658585 (Version 2)
Quarter: 2013Q4

REPORT INFORMATION
  Report Type: Spontaneous
  Country: US (occurrence: US)
  Receive Date: 20131030
  Receipt Date: 20131030
  Transmission Date: 20140711
  Serious: No
  Sender: FDA-Public Use
  Company Number: US-PURDUE-USA-2010-0052109

PATIENT
  Age: 45 Year
  Sex: Female
  Weight: 83.9 kg

DRUGS (9)
  1. OXYCONTIN (NDA 22-272) [Suspect]
     Indication: NERVE INJURY
     Dosage: 40 MG, TID
     Route: 048
     Dates: end: 20101005
  2. OXYCONTIN (NDA 22-272) [Suspect]
     Indication: BACK DISORDER
  3. OXYCONTIN (NDA 22-272) [Suspect]
     Indication: PAIN
  4. ARMOUR THYROID [Concomitant]
     Indication: PRODUCT USED FOR UNKNOWN INDICATION
     Dosage: 3/4 GRAIN
  5. PERCOCET                           /00446701/ [Concomitant]
     Indication: PRODUCT USED FOR UNKNOWN INDICATION
     Dosage: 10/325 TWICE DAILY
  6. BACLOFEN [Concomitant]
     Indication: PRODUCT USED FOR UNKNOWN INDICATION
     Dosage: UNK, BID
  7. MACRODANTIN [Concomitant]
     Indication: PRODUCT USED FOR UNKNOWN INDICATION
  8. ENDOCET [Concomitant]
     Indication: PRODUCT USED FOR UNKNOWN INDICATION
     Dosage: 10/325
  9. ROBAXIN [Concomitant]
     Indication: PRODUCT USED FOR UNKNOWN INDICATION

REACTIONS (10)
  - Drug withdrawal syndrome [Recovered/Resolved]
  - Lacrimation increased [Recovered/Resolved]
  - Pain [Recovered/Resolved]
  - Nausea [Recovered/Resolved]
  - Headache [Recovered/Resolved]
  - Diarrhoea [Recovered/Resolved]
  - Pruritus [Recovered/Resolved]
  - Drug ineffective [Recovered/Resolved]
  - Abdominal pain upper [Recovered/Resolved]
  - Intentional drug misuse [Unknown]
